FAERS Safety Report 7259571-2 (Version None)
Quarter: 2011Q1

REPORT INFORMATION
  Report Type: 
  Country: None (occurrence: None)
  Receive Date: 20110130
  Receipt Date: 20100901
  Transmission Date: 20110831
  Serious: No
  Sender: FDA-Public Use
  Company Number: US-ABBOTT-09P-163-0608738-00

PATIENT
  Sex: Female
  Weight: 56.75 kg

DRUGS (1)
  1. HUMIRA [Suspect]
     Indication: ANKYLOSING SPONDYLITIS
     Dates: start: 20091014

REACTIONS (5)
  - CHILLS [None]
  - DRUG DOSE OMISSION [None]
  - COUGH [None]
  - CHEST DISCOMFORT [None]
  - PAIN [None]
